FAERS Safety Report 23748748 (Version 1)
Quarter: 2024Q2

REPORT INFORMATION
  Report Type: Spontaneous
  Country: ZA (occurrence: None)
  Receive Date: 20240416
  Receipt Date: 20240416
  Transmission Date: 20240716
  Serious: Yes (Hospitalization)
  Sender: FDA-Public Use
  Company Number: 2024A086884

PATIENT
  Age: 66 Year
  Sex: Female

DRUGS (7)
  1. BUDESONIDE\FORMOTEROL FUMARATE DIHYDRATE [Suspect]
     Active Substance: BUDESONIDE\FORMOTEROL FUMARATE DIHYDRATE
     Dosage: UNK, UNKNOWN UNKNOWN
     Route: 055
  2. PRAMIPEXOLE DIHYDROCHLORIDE [Concomitant]
     Active Substance: PRAMIPEXOLE DIHYDROCHLORIDE
  3. SYNALEVE [Concomitant]
  4. ERGOCALCIFEROL [Concomitant]
     Active Substance: ERGOCALCIFEROL
  5. CARBILEV 25 [Concomitant]
     Dosage: 25/100 MG
  6. FUROSEMIDE [Concomitant]
     Active Substance: FUROSEMIDE
  7. LOSARTAN POTASSIUM [Concomitant]
     Active Substance: LOSARTAN POTASSIUM

REACTIONS (3)
  - Inflammation [Unknown]
  - Parkinson^s disease [Unknown]
  - Restless legs syndrome [Unknown]
